FAERS Safety Report 7435669-0 (Version None)
Quarter: 2011Q2

REPORT INFORMATION
  Report Type: 
  Country: None (occurrence: None)
  Receive Date: 20110425
  Receipt Date: 20110211
  Transmission Date: 20111010
  Serious: Yes (Other)
  Sender: FDA-Public Use
  Company Number: PHHY2011AU10909

PATIENT
  Age: 69 Year
  Sex: Female

DRUGS (1)
  1. SIMVAHEXAL [Suspect]
     Dosage: 5 DF, UNK
     Route: 048

REACTIONS (2)
  - DYSPNOEA [None]
  - PALPITATIONS [None]
